FAERS Safety Report 7477756-7 (Version None)
Quarter: 2011Q2

REPORT INFORMATION
  Report Type: 
  Country: None (occurrence: None)
  Receive Date: 20110511
  Receipt Date: 20110511
  Transmission Date: 20111010
  Serious: Yes (Death, Hospitalization)
  Sender: FDA-Public Use
  Company Number: None

PATIENT
  Sex: Female
  Weight: 55.79 kg

DRUGS (2)
  1. CARBOPLATIN [Suspect]
     Dosage: 555 MG
     Dates: end: 20110418
  2. TAXOL [Suspect]
     Dosage: 120 MG
     Dates: end: 20110425

REACTIONS (12)
  - NEUTROPENIA [None]
  - SEPSIS [None]
  - ASCITES [None]
  - STAPHYLOCOCCUS TEST POSITIVE [None]
  - URINARY TRACT INFECTION [None]
  - THROMBOCYTOPENIA [None]
  - ECONOMIC PROBLEM [None]
  - GENERAL PHYSICAL HEALTH DETERIORATION [None]
  - MALIGNANT PLEURAL EFFUSION [None]
  - BLOOD GLUCOSE INCREASED [None]
  - DEVICE RELATED INFECTION [None]
  - MYOCARDIAL ISCHAEMIA [None]
